FAERS Safety Report 17912646 (Version 1)
Quarter: 2020Q2

REPORT INFORMATION
  Report Type: Spontaneous
  Country: CA (occurrence: CA)
  Receive Date: 20200618
  Receipt Date: 20200618
  Transmission Date: 20200714
  Serious: Yes (Hospitalization)
  Sender: FDA-Public Use
  Company Number: CA-CIPHER-2020-CA-000810

PATIENT
  Age: 78 Day
  Sex: Female

DRUGS (29)
  1. PLAQUENIL [Suspect]
     Active Substance: HYDROXYCHLOROQUINE SULFATE
     Dosage: UNKNOWN DOSE
     Route: 048
  2. SULFAMETHOXAZOLE AND TRIMETHOPRIM [Suspect]
     Active Substance: SULFAMETHOXAZOLE\TRIMETHOPRIM
     Dosage: UNKNOWN DOSE
     Route: 065
  3. ENBREL [Suspect]
     Active Substance: ETANERCEPT
     Dosage: UNKNOWN DOSE
     Route: 065
  4. GOLD [Suspect]
     Active Substance: GOLD
     Dosage: UNKNOWN DOSE
     Route: 065
  5. HUMIRA [Suspect]
     Active Substance: ADALIMUMAB
     Indication: RHEUMATOID ARTHRITIS
     Dosage: UNKNOWN DOSE
     Route: 065
  6. NAPROSYN [Suspect]
     Active Substance: NAPROXEN
     Dosage: UNKNOWN DOSE
     Route: 065
  7. NAPROXEN. [Suspect]
     Active Substance: NAPROXEN
     Dosage: UNKNOWN DOSE
     Route: 065
  8. ACETYLSALICYLIC ACID / CLOPIDOGREL [Suspect]
     Active Substance: ASPIRIN\CLOPIDOGREL BISULFATE
     Dosage: UNKNOWN DOSE
     Route: 065
  9. HYDROXYCHLOROQUINE [Suspect]
     Active Substance: HYDROXYCHLOROQUINE
     Dosage: UNKNOWN DOSE
     Route: 065
  10. TRIMETHOPRIM. [Suspect]
     Active Substance: TRIMETHOPRIM
     Dosage: UNKNOWN DOSE
     Route: 065
  11. SODIUM AUROTHIOMALATE [Suspect]
     Active Substance: GOLD SODIUM THIOMALATE
     Indication: RHEUMATOID ARTHRITIS
     Dosage: UNKNOWN DOSE
     Route: 065
  12. DICLOFENAC POTASSIUM. [Suspect]
     Active Substance: DICLOFENAC POTASSIUM
     Dosage: UNKNOWN DOSE
     Route: 065
  13. SULFATRIM [Suspect]
     Active Substance: SULFAMETHOXAZOLE\TRIMETHOPRIM
     Indication: RHEUMATOID ARTHRITIS
     Dosage: UNKNOWN DOSE
     Route: 065
  14. NAPROXEN SODIUM. [Suspect]
     Active Substance: NAPROXEN SODIUM
     Dosage: UNKNOWN DOSE
     Route: 065
  15. IBUPROFEN. [Suspect]
     Active Substance: IBUPROFEN
     Dosage: UNKNOWN DOSE
     Route: 065
  16. METHOTREXATE. [Suspect]
     Active Substance: METHOTREXATE
     Indication: RHEUMATOID ARTHRITIS
     Dosage: UNKNOWN DOSE
     Route: 065
  17. VOLTAREN [Suspect]
     Active Substance: DICLOFENAC SODIUM
     Dosage: UNKNOWN DOSE
     Route: 065
  18. ASA [Suspect]
     Active Substance: ASPIRIN
     Dosage: UNKNOWN DOSE
     Route: 065
  19. APO-DICLOFENAC [Suspect]
     Active Substance: DICLOFENAC
     Dosage: UNKNOWN DOSE
     Route: 061
  20. APO-SULFATRIM [Suspect]
     Active Substance: SULFAMETHOXAZOLE\TRIMETHOPRIM
     Dosage: UNKNOWN DOSE
     Route: 065
  21. ARAVA [Suspect]
     Active Substance: LEFLUNOMIDE
     Dosage: UNKNOWN DOSE
     Route: 065
  22. CLOPIDOGREL [Suspect]
     Active Substance: CLOPIDOGREL BISULFATE
     Dosage: UNKNOWN DOSE
     Route: 065
  23. DICLOFENAC [Suspect]
     Active Substance: DICLOFENAC
     Dosage: UNKNOWN DOSE
     Route: 065
  24. TRAMADOL HYDROCHLORIDE. [Suspect]
     Active Substance: TRAMADOL HYDROCHLORIDE
     Indication: RHEUMATOID ARTHRITIS
     Dosage: UNKNOWN DOSE
     Route: 065
  25. MOTRIN [Suspect]
     Active Substance: IBUPROFEN
     Dosage: UNKNOWN DOSE
     Route: 065
  26. ACETYLSALICYLIC ACID (ASPIRIN) [Suspect]
     Active Substance: ASPIRIN
     Dosage: UNKNOWN DOSE
     Route: 065
  27. SULFAMETHOXAZOLE [Suspect]
     Active Substance: SULFAMETHOXAZOLE
     Dosage: UNKNOWN DOSE
     Route: 065
  28. VITAMIN C [Suspect]
     Active Substance: ASCORBIC ACID
     Indication: RHEUMATOID ARTHRITIS
     Dosage: UNKNOWN DOSE
     Route: 065
  29. GOLD [Suspect]
     Active Substance: GOLD
     Dosage: UNKNOWN DOSE
     Route: 065

REACTIONS (23)
  - Gastrointestinal disorder [Not Recovered/Not Resolved]
  - Off label use [Not Recovered/Not Resolved]
  - Vomiting [Not Recovered/Not Resolved]
  - Decreased appetite [Not Recovered/Not Resolved]
  - Feeding disorder [Not Recovered/Not Resolved]
  - Pharyngitis [Not Recovered/Not Resolved]
  - Weight decreased [Not Recovered/Not Resolved]
  - Dizziness [Not Recovered/Not Resolved]
  - Gastrointestinal pain [Not Recovered/Not Resolved]
  - Deafness [Not Recovered/Not Resolved]
  - Deafness transitory [Not Recovered/Not Resolved]
  - Functional gastrointestinal disorder [Not Recovered/Not Resolved]
  - Musculoskeletal disorder [Not Recovered/Not Resolved]
  - Abdominal discomfort [Not Recovered/Not Resolved]
  - Abdominal pain upper [Not Recovered/Not Resolved]
  - Drug hypersensitivity [Not Recovered/Not Resolved]
  - Ear infection [Not Recovered/Not Resolved]
  - Arthropathy [Not Recovered/Not Resolved]
  - Headache [Not Recovered/Not Resolved]
  - Abnormal loss of weight [Not Recovered/Not Resolved]
  - Hypophagia [Not Recovered/Not Resolved]
  - Nausea [Not Recovered/Not Resolved]
  - Eating disorder [Not Recovered/Not Resolved]
